FAERS Safety Report 19660496 (Version 1)
Quarter: 2021Q3

REPORT INFORMATION
  Report Type: Spontaneous
  Country: CA (occurrence: CA)
  Receive Date: 20210805
  Receipt Date: 20210805
  Transmission Date: 20211014
  Serious: Yes (Other)
  Sender: FDA-Public Use
  Company Number: CA-SA-2021SA251786

PATIENT
  Sex: Female

DRUGS (5)
  1. CIPROFLOXACIN. [Suspect]
     Active Substance: CIPROFLOXACIN
     Indication: JUVENILE IDIOPATHIC ARTHRITIS
     Dosage: UNK
  2. NAPROXEN. [Concomitant]
     Active Substance: NAPROXEN
     Dosage: 2 UNK, QD
     Route: 058
  3. ENBREL [Concomitant]
     Active Substance: ETANERCEPT
     Dosage: 1 UNK, QW
     Route: 058
  4. LEFLUNOMIDE. [Suspect]
     Active Substance: LEFLUNOMIDE
     Indication: JUVENILE IDIOPATHIC ARTHRITIS
     Dosage: 1 DF, QD
  5. METHOTREXATE. [Suspect]
     Active Substance: METHOTREXATE
     Indication: JUVENILE IDIOPATHIC ARTHRITIS
     Dosage: 1 DF, QW
     Route: 058

REACTIONS (11)
  - Stress [Unknown]
  - Drug ineffective [Unknown]
  - Product use in unapproved indication [Unknown]
  - Gastrointestinal disorder [Unknown]
  - Swelling [Unknown]
  - Juvenile idiopathic arthritis [Unknown]
  - Pyrexia [Unknown]
  - Cough [Unknown]
  - Drug hypersensitivity [Unknown]
  - Product use issue [Unknown]
  - Nodule [Unknown]
